FAERS Safety Report 11415106 (Version 3)
Quarter: 2016Q2

REPORT INFORMATION
  Report Type: Spontaneous
  Country: IT (occurrence: IT)
  Receive Date: 20150825
  Receipt Date: 20160405
  Transmission Date: 20160815
  Serious: Yes (Life-Threatening, Hospitalization)
  Sender: FDA-Public Use
  Company Number: IT-ACCORD-033157

PATIENT
  Age: 50 Year
  Sex: Male

DRUGS (4)
  1. ARIXTRA [Concomitant]
     Active Substance: FONDAPARINUX SODIUM
     Dosage: 1 VIAL DAILY UNTIL?ANGIOLOGICAL EXAMINATION
  2. DILZENE [Concomitant]
     Active Substance: DILTIAZEM HYDROCHLORIDE
  3. CARDIOASPIRIN [Concomitant]
     Active Substance: ASPIRIN
  4. CAPECITABINE. [Suspect]
     Active Substance: CAPECITABINE
     Indication: COLON NEOPLASM
     Route: 048
     Dates: start: 20150801, end: 20150807

REACTIONS (3)
  - Kounis syndrome [Recovered/Resolved]
  - Prinzmetal angina [Unknown]
  - Acute coronary syndrome [Recovered/Resolved]

NARRATIVE: CASE EVENT DATE: 20150808
